FAERS Safety Report 15458085 (Version 6)
Quarter: 2019Q2

REPORT INFORMATION
  Report Type: Spontaneous
  Country: CZ (occurrence: CZ)
  Receive Date: 20181003
  Receipt Date: 20190624
  Transmission Date: 20190711
  Serious: Yes (Other)
  Sender: FDA-Public Use
  Company Number: CZ-ROCHE-2191837

PATIENT
  Age: 52 Year
  Sex: Female

DRUGS (11)
  1. BEVACIZUMAB. [Suspect]
     Active Substance: BEVACIZUMAB
     Indication: COLORECTAL CANCER METASTATIC
     Dosage: IN FRAME OF FOLFOX REGIMEN
     Route: 065
     Dates: start: 200910
  2. LEUCOVORIN CALCIUM. [Suspect]
     Active Substance: LEUCOVORIN CALCIUM
     Indication: COLORECTAL CANCER METASTATIC
     Dosage: IN FRAME OF FOLFOX REGIMEN
     Route: 065
     Dates: start: 200910
  3. CAPECITABINE. [Suspect]
     Active Substance: CAPECITABINE
     Dosage: MONOTHERAPY
     Route: 065
     Dates: end: 201207
  4. LEUCOVORIN CALCIUM. [Suspect]
     Active Substance: LEUCOVORIN CALCIUM
     Dosage: IN FRAME OF FUFA REGIMEN
     Route: 065
     Dates: end: 201109
  5. BEVACIZUMAB. [Suspect]
     Active Substance: BEVACIZUMAB
     Dosage: IN FRAME OF FUFA REGIMEN
     Route: 065
     Dates: end: 201109
  6. CAPECITABINE. [Suspect]
     Active Substance: CAPECITABINE
     Dosage: AFTER 2 CYCLES
     Route: 047
     Dates: start: 201309, end: 201403
  7. FLUOROURACIL. [Suspect]
     Active Substance: FLUOROURACIL
     Dosage: IN FRAME OF FUFA REGIMEN
     Route: 065
     Dates: end: 201109
  8. CAPECITABINE. [Suspect]
     Active Substance: CAPECITABINE
     Indication: COLORECTAL CANCER METASTATIC
     Dosage: TERMINATED AFTER FIRST CYCLE
     Route: 065
     Dates: start: 201201
  9. FLUOROURACIL. [Suspect]
     Active Substance: FLUOROURACIL
     Indication: COLORECTAL CANCER METASTATIC
     Dosage: IN FRAME OF FOLFOX REGIMEN
     Route: 065
     Dates: start: 200910
  10. OXALIPLATIN. [Suspect]
     Active Substance: OXALIPLATIN
     Indication: COLORECTAL CANCER METASTATIC
     Dosage: IN FRAME OF FOLFOX REGIMEN
     Route: 042
     Dates: start: 200910, end: 201011
  11. IRINOTECAN [Suspect]
     Active Substance: IRINOTECAN
     Indication: COLORECTAL CANCER METASTATIC
     Route: 065
     Dates: start: 201201

REACTIONS (3)
  - Palmar-plantar erythrodysaesthesia syndrome [Unknown]
  - Haematotoxicity [Recovered/Resolved]
  - Mucosal toxicity [Unknown]

NARRATIVE: CASE EVENT DATE: 2010
